FAERS Safety Report 10146624 (Version 1)
Quarter: 2014Q2

REPORT INFORMATION
  Report Type: Spontaneous
  Country: BR (occurrence: None)
  Receive Date: 20140429
  Receipt Date: 20140429
  Transmission Date: 20141212
  Serious: Yes (Other)
  Sender: FDA-Public Use
  Company Number: BR-TORRENT-00002086

PATIENT
  Age: 45 Year
  Sex: Male

DRUGS (6)
  1. METTA SR [Suspect]
     Indication: BLOOD TRIGLYCERIDES INCREASED
     Route: 048
     Dates: start: 20101230
  2. TORVAL CR [Suspect]
     Indication: MENTAL DISORDER
     Route: 048
     Dates: start: 2000
  3. ABLOK PLUS [Concomitant]
  4. PURAN T4 [Concomitant]
  5. RIVOTRIL [Concomitant]
  6. RISPERIDONE [Concomitant]

REACTIONS (4)
  - Haematochezia [None]
  - Dizziness [None]
  - Nausea [None]
  - Off label use [None]
